FAERS Safety Report 19063460 (Version 3)
Quarter: 2021Q2

REPORT INFORMATION
  Report Type: Report from Study
  Country: US (occurrence: US)
  Receive Date: 20210326
  Receipt Date: 20210608
  Transmission Date: 20210717
  Serious: Yes (Other)
  Sender: FDA-Public Use
  Company Number: US-SUNOVION-2021SUN000996

PATIENT
  Age: 75 Year
  Sex: Female

DRUGS (11)
  1. CARBIDOPA/LEVODOPA [Concomitant]
     Active Substance: CARBIDOPA\LEVODOPA
  2. DOK [Concomitant]
     Active Substance: DOCUSATE SODIUM
  3. FLUDROCORTISONE [Concomitant]
     Active Substance: FLUDROCORTISONE
  4. KETOROLAC [Concomitant]
     Active Substance: KETOROLAC TROMETHAMINE
  5. PANTOPRAZOLE [Concomitant]
     Active Substance: PANTOPRAZOLE
  6. KYNMOBI [Suspect]
     Active Substance: APOMORPHINE HYDROCHLORIDE
     Indication: PARKINSON^S DISEASE
     Dosage: 10 MG
     Route: 060
     Dates: start: 20210317, end: 20210317
  7. KYNMOBI [Suspect]
     Active Substance: APOMORPHINE HYDROCHLORIDE
     Dosage: UNK
     Route: 060
  8. INBRIJA [Suspect]
     Active Substance: LEVODOPA
     Dosage: 84 MG, AS NECESSARY
     Route: 055
     Dates: start: 20210219
  9. CLONAZEPAM. [Concomitant]
     Active Substance: CLONAZEPAM
  10. MIDODRINE [Concomitant]
     Active Substance: MIDODRINE
  11. NOURIANZ [Concomitant]
     Active Substance: ISTRADEFYLLINE

REACTIONS (10)
  - Heart rate decreased [Unknown]
  - Cough [Recovering/Resolving]
  - Vomiting [Unknown]
  - Nausea [Unknown]
  - Loss of consciousness [Unknown]
  - Blood pressure decreased [Unknown]
  - Diarrhoea [Unknown]
  - Abdominal pain [Unknown]
  - Abdominal pain upper [Unknown]
  - Syncope [Unknown]

NARRATIVE: CASE EVENT DATE: 20210317
